FAERS Safety Report 9579268 (Version 1)
Quarter: 2013Q4

REPORT INFORMATION
  Report Type: Spontaneous
  Country: US (occurrence: US)
  Receive Date: 20131001
  Receipt Date: 20131001
  Transmission Date: 20140711
  Serious: No
  Sender: FDA-Public Use
  Company Number: US-AMGEN-USASP2013017316

PATIENT
  Age: 49 Year
  Sex: Female
  Weight: 83.9 kg

DRUGS (2)
  1. ENBREL [Suspect]
     Indication: PRODUCT USED FOR UNKNOWN INDICATION
     Dosage: 50 MG, WEEKLY
     Route: 058
  2. MELOXICAM [Concomitant]
     Dosage: 7.5 MG, UNK

REACTIONS (3)
  - Joint stiffness [Recovered/Resolved]
  - Fatigue [Recovered/Resolved]
  - Drug effect incomplete [Recovered/Resolved]
